FAERS Safety Report 17766836 (Version 2)
Quarter: 2020Q3

REPORT INFORMATION
  Report Type: Report from Study
  Country: US (occurrence: US)
  Receive Date: 20200511
  Receipt Date: 20200807
  Transmission Date: 20201102
  Serious: No
  Sender: FDA-Public Use
  Company Number: NVSC2020US125762

PATIENT
  Sex: Female

DRUGS (1)
  1. COSENTYX [Suspect]
     Active Substance: SECUKINUMAB
     Indication: ANKYLOSING SPONDYLITIS
     Dosage: UNK UNK, Q4W
     Route: 058

REACTIONS (4)
  - Intervertebral disc disorder [Unknown]
  - Drug ineffective [Unknown]
  - Spinal stenosis [Unknown]
  - Intervertebral disc degeneration [Unknown]
